FAERS Safety Report 14561635 (Version 36)
Quarter: 2020Q2

REPORT INFORMATION
  Report Type: Report from Study
  Country: DE (occurrence: DE)
  Receive Date: 20180222
  Receipt Date: 20200608
  Transmission Date: 20200713
  Serious: Yes (Hospitalization, Other)
  Sender: FDA-Public Use
  Company Number: DE-BRISTOL-MYERS SQUIBB COMPANY-BMS-2018-012361

PATIENT
  Age: 55 Year
  Sex: Male
  Weight: 128 kg

DRUGS (22)
  1. NIVOLUMAB [Suspect]
     Active Substance: NIVOLUMAB
     Indication: LUNG NEOPLASM MALIGNANT
     Dosage: 126 DOSAGE FORM, Q3WK
     Route: 065
     Dates: start: 20171123, end: 20171123
  2. NIVOLUMAB [Suspect]
     Active Substance: NIVOLUMAB
     Indication: PRODUCT USED FOR UNKNOWN INDICATION
     Dosage: 480 ABSENT, Q4WK
     Route: 065
     Dates: start: 20180806, end: 20190305
  3. NIVOLUMAB [Suspect]
     Active Substance: NIVOLUMAB
     Indication: PRODUCT USED FOR UNKNOWN INDICATION
     Dosage: 480 ABSENT, Q4WK
     Route: 065
     Dates: start: 20191125, end: 20191223
  4. NIVOLUMAB [Suspect]
     Active Substance: NIVOLUMAB
     Indication: PRODUCT USED FOR UNKNOWN INDICATION
     Dosage: 95 UNK, Q4WK
     Route: 065
     Dates: start: 20200511, end: 20200511
  5. NIVOLUMAB [Suspect]
     Active Substance: NIVOLUMAB
     Indication: MALIGNANT MELANOMA
     Dosage: 128 ABSENT, Q3WK
     Route: 065
     Dates: start: 20171102, end: 20171102
  6. NIVOLUMAB [Suspect]
     Active Substance: NIVOLUMAB
     Indication: PRODUCT USED FOR UNKNOWN INDICATION
     Dosage: 1 DOSAGE FORM 480 (UNIT UNSPECIFIED), Q4WK
     Route: 065
     Dates: start: 20190702, end: 20190702
  7. NIVOLUMAB [Suspect]
     Active Substance: NIVOLUMAB
     Indication: PRODUCT USED FOR UNKNOWN INDICATION
     Dosage: 1 DOSAGE FORM, Q4WK
     Route: 065
     Dates: start: 20190528, end: 20190528
  8. NIVOLUMAB [Suspect]
     Active Substance: NIVOLUMAB
     Indication: PRODUCT USED FOR UNKNOWN INDICATION
     Dosage: 1 DOSAGE FORM 480 (UNIT WAS NOT SPECIFIED)
     Route: 065
     Dates: start: 20190827, end: 20190827
  9. NIVOLUMAB [Suspect]
     Active Substance: NIVOLUMAB
     Indication: PRODUCT USED FOR UNKNOWN INDICATION
     Dosage: 1 DOSAGE FORM, 480 (UNITS NOT SPECIFIED) Q4WK
     Route: 065
     Dates: start: 20190402, end: 20190402
  10. NIVOLUMAB [Suspect]
     Active Substance: NIVOLUMAB
     Indication: PRODUCT USED FOR UNKNOWN INDICATION
     Dosage: 480 ABSENT, Q4WK
     Route: 065
     Dates: start: 20190924
  11. NIVOLUMAB [Suspect]
     Active Substance: NIVOLUMAB
     Indication: PRODUCT USED FOR UNKNOWN INDICATION
     Dosage: 480 ABSENT, Q4WK
     Route: 065
     Dates: start: 20191223, end: 20191223
  12. NIVOLUMAB [Suspect]
     Active Substance: NIVOLUMAB
     Indication: PRODUCT USED FOR UNKNOWN INDICATION
     Dosage: 104 ABSENT, Q3WK
     Route: 065
     Dates: start: 20200304, end: 20200304
  13. IPILIMUMAB [Suspect]
     Active Substance: IPILIMUMAB
     Indication: MALIGNANT MELANOMA
     Dosage: 384 ABSENT, Q3WK
     Route: 065
     Dates: start: 20171102, end: 20171102
  14. IPILIMUMAB [Suspect]
     Active Substance: IPILIMUMAB
     Indication: PRODUCT USED FOR UNKNOWN INDICATION
     Dosage: 372 ABSENT, Q3WK
     Route: 065
     Dates: start: 20171214, end: 20171214
  15. NIVOLUMAB [Suspect]
     Active Substance: NIVOLUMAB
     Indication: PRODUCT USED FOR UNKNOWN INDICATION
     Dosage: UNK, Q3WK
     Route: 065
     Dates: start: 20200331, end: 20200331
  16. NIVOLUMAB [Suspect]
     Active Substance: NIVOLUMAB
     Indication: PRODUCT USED FOR UNKNOWN INDICATION
     Dosage: 1 DOSAGE FORM 480 (UNIT WAS NOT SPECIFIED)
     Route: 065
     Dates: start: 20190430, end: 20190430
  17. IPILIMUMAB [Suspect]
     Active Substance: IPILIMUMAB
     Indication: LUNG NEOPLASM MALIGNANT
     Dosage: 378 ABSENT, Q3WK
     Route: 065
     Dates: start: 20171123, end: 20171123
  18. NIVOLUMAB [Suspect]
     Active Substance: NIVOLUMAB
     Indication: PRODUCT USED FOR UNKNOWN INDICATION
     Dosage: 124 ABSENT, Q3WK
     Route: 065
     Dates: start: 20171214, end: 20171214
  19. NIVOLUMAB [Suspect]
     Active Substance: NIVOLUMAB
     Indication: PRODUCT USED FOR UNKNOWN INDICATION
     Dosage: 480 ABSENT, Q4WK
     Route: 065
     Dates: start: 20180528, end: 20180625
  20. NIVOLUMAB [Suspect]
     Active Substance: NIVOLUMAB
     Indication: PRODUCT USED FOR UNKNOWN INDICATION
     Dosage: 480 ABSENT, QWK
     Route: 065
     Dates: start: 20180625
  21. NIVOLUMAB [Suspect]
     Active Substance: NIVOLUMAB
     Indication: PRODUCT USED FOR UNKNOWN INDICATION
     Dosage: 1 DOSAGE FORM 480 (UNIT WAS NOT SPECIFIED)
     Route: 065
     Dates: start: 20190730, end: 20190730
  22. NIVOLUMAB [Suspect]
     Active Substance: NIVOLUMAB
     Indication: PRODUCT USED FOR UNKNOWN INDICATION
     Dosage: 95 ABSENT, Q3WK
     Route: 065
     Dates: start: 20200422, end: 20200422

REACTIONS (19)
  - General physical health deterioration [Unknown]
  - Metastases to central nervous system [Unknown]
  - Nausea [Unknown]
  - Pneumonitis [Recovered/Resolved]
  - Erysipelas [Unknown]
  - Adrenal insufficiency [Unknown]
  - Radiation skin injury [Unknown]
  - Fatigue [Unknown]
  - Muscle spasms [Unknown]
  - Ear discomfort [Unknown]
  - Dizziness [Unknown]
  - Metastatic malignant melanoma [Unknown]
  - Diarrhoea [Unknown]
  - Musculoskeletal stiffness [Unknown]
  - Metastases to lymph nodes [Unknown]
  - Restlessness [Unknown]
  - Pulmonary embolism [Recovered/Resolved]
  - Brain oedema [Unknown]
  - Cutis laxa [Unknown]

NARRATIVE: CASE EVENT DATE: 20171207
